FAERS Safety Report 7159031-3 (Version None)
Quarter: 2010Q4

REPORT INFORMATION
  Report Type: 
  Country: None (occurrence: None)
  Receive Date: 20101214
  Receipt Date: 20101202
  Transmission Date: 20110411
  Serious: Yes (Death, Other)
  Sender: FDA-Public Use
  Company Number: JP-PFIZER INC-2010170339

PATIENT
  Age: 76 Year
  Sex: Male
  Weight: 52 kg

DRUGS (5)
  1. CAMPTOSAR [Suspect]
     Indication: COLORECTAL CANCER
     Dosage: 220 MG, UNK
     Route: 041
     Dates: start: 20100209, end: 20100629
  2. CALCIUM LEVOFOLINATE [Concomitant]
     Indication: COLORECTAL CANCER
     Dosage: 300 MG, UNK
     Route: 041
     Dates: start: 20100209, end: 20100629
  3. FLUOROURACIL [Concomitant]
     Indication: COLORECTAL CANCER
     Dosage: 600 MG, UNK
     Route: 040
     Dates: start: 20100209, end: 20100629
  4. FLUOROURACIL [Concomitant]
     Dosage: 3600 MG, UNK
     Route: 041
     Dates: start: 20100209, end: 20100629
  5. AVASTIN [Concomitant]
     Indication: COLORECTAL CANCER
     Dosage: 250 MG, UNK
     Route: 041
     Dates: start: 20100209, end: 20100629

REACTIONS (7)
  - CACHEXIA [None]
  - COLORECTAL CANCER [None]
  - DISEASE PROGRESSION [None]
  - HAEMOGLOBIN DECREASED [None]
  - MALIGNANT NEOPLASM PROGRESSION [None]
  - NEUTROPENIA [None]
  - PYREXIA [None]
